FAERS Safety Report 5238237-4 (Version None)
Quarter: 2007Q1

REPORT INFORMATION
  Report Type: 
  Country: None (occurrence: None)
  Receive Date: 20070215
  Receipt Date: 20070202
  Transmission Date: 20070707
  Serious: Yes (Disabling, Other)
  Sender: FDA-Public Use
  Company Number: PHEH2007US01439

PATIENT
  Age: 27 Year
  Sex: Female
  Weight: 59.863 kg

DRUGS (2)
  1. TRIPHASIL-28 [Concomitant]
     Indication: CONTRACEPTION
     Dosage: ONE DAILY
     Route: 048
     Dates: start: 20050912
  2. ZELNORM [Suspect]
     Indication: IRRITABLE BOWEL SYNDROME
     Dosage: 6 MG, UNK
     Route: 048
     Dates: start: 20061113, end: 20061114

REACTIONS (12)
  - ARTHRALGIA [None]
  - DEAFNESS [None]
  - DIZZINESS [None]
  - EAR PAIN [None]
  - EYE INFLAMMATION [None]
  - FATIGUE [None]
  - HYPERSENSITIVITY [None]
  - LABYRINTHITIS [None]
  - NASAL CONGESTION [None]
  - PAIN [None]
  - URTICARIA [None]
  - VERTIGO [None]
